FAERS Safety Report 10201563 (Version 3)
Quarter: 2015Q1

REPORT INFORMATION
  Report Type: Spontaneous
  Country: US (occurrence: US)
  Receive Date: 20140528
  Receipt Date: 20150121
  Transmission Date: 20150720
  Serious: Yes (Hospitalization, Other)
  Sender: FDA-Public Use
  Company Number: US-JNJFOC-20140516656

PATIENT
  Age: 23 Year
  Sex: Female

DRUGS (5)
  1. METAXALONE. [Interacting]
     Active Substance: METAXALONE
     Indication: BACK PAIN
     Route: 065
  2. NAPROXEN. [Suspect]
     Active Substance: NAPROXEN
     Indication: BACK PAIN
     Route: 065
  3. METAXALONE. [Interacting]
     Active Substance: METAXALONE
     Indication: BACK PAIN
     Route: 065
  4. TRAMADOL HYDROCHLORIDE. [Suspect]
     Active Substance: TRAMADOL HYDROCHLORIDE
     Indication: BACK PAIN
     Route: 048
  5. TRAMADOL HYDROCHLORIDE. [Suspect]
     Active Substance: TRAMADOL HYDROCHLORIDE
     Indication: BACK PAIN
     Route: 048

REACTIONS (4)
  - Suicidal behaviour [Unknown]
  - Drug interaction [Unknown]
  - Serotonin syndrome [Unknown]
  - Intentional overdose [Unknown]
